FAERS Safety Report 6333742-1 (Version None)
Quarter: 2009Q3

REPORT INFORMATION
  Report Type: 
  Country: None (occurrence: None)
  Receive Date: 20090829
  Receipt Date: 20090601
  Transmission Date: 20100115
  Serious: No
  Sender: FDA-Public Use
  Company Number: US-ABBOTT-09P-163-0577075-00

PATIENT
  Sex: Male

DRUGS (11)
  1. SIMCOR [Suspect]
     Indication: HIGH DENSITY LIPOPROTEIN DECREASED
     Dosage: 500/20 MG TAKEN AT BEDTIME
     Dates: start: 20090401
  2. COMBIVENT [Concomitant]
     Indication: DRUG USE FOR UNKNOWN INDICATION
  3. PROAIR HFA [Concomitant]
     Indication: DRUG USE FOR UNKNOWN INDICATION
  4. ZOLPIDEM [Concomitant]
     Indication: DRUG USE FOR UNKNOWN INDICATION
  5. LISINOPRIL [Concomitant]
     Indication: DRUG USE FOR UNKNOWN INDICATION
  6. PRILOSEC [Concomitant]
     Indication: DRUG USE FOR UNKNOWN INDICATION
  7. MULTI-VITAMIN [Concomitant]
     Indication: DRUG USE FOR UNKNOWN INDICATION
  8. ASCORBIC ACID [Concomitant]
     Indication: DRUG USE FOR UNKNOWN INDICATION
  9. AMITRIPTYLINE [Concomitant]
     Indication: DRUG USE FOR UNKNOWN INDICATION
  10. ATENOLOL [Concomitant]
     Indication: DRUG USE FOR UNKNOWN INDICATION
  11. ADVIL [Concomitant]
     Indication: DRUG USE FOR UNKNOWN INDICATION
     Dosage: 200 MG 2 TABLETS

REACTIONS (1)
  - FLUSHING [None]
